FAERS Safety Report 20713304 (Version 1)
Quarter: 2022Q2

REPORT INFORMATION
  Report Type: Spontaneous
  Country: US (occurrence: None)
  Receive Date: 20220414
  Receipt Date: 20220414
  Transmission Date: 20220720
  Serious: Yes (Hospitalization)
  Sender: FDA-Public Use
  Company Number: None

PATIENT
  Sex: Female

DRUGS (1)
  1. NIVESTYM [Suspect]
     Active Substance: FILGRASTIM-AAFI
     Indication: Breast cancer
     Dosage: OTHER STRENGTH : 300/0.5 UG/M;?OTHER FREQUENCY : DAYS 3-10 OF 21;?
     Route: 058
     Dates: start: 20211215

REACTIONS (1)
  - Pulmonary embolism [None]
